FAERS Safety Report 9963948 (Version 2)
Quarter: 2014Q1

REPORT INFORMATION
  Report Type: Spontaneous
  Country: DE (occurrence: DE)
  Receive Date: 20140305
  Receipt Date: 20140320
  Transmission Date: 20141002
  Serious: Yes (Other)
  Sender: FDA-Public Use
  Company Number: GXKR2014DE001019

PATIENT
  Age: 74 Year
  Sex: Male

DRUGS (1)
  1. METOHEXAL SUCC [Suspect]
     Dosage: 47.5 MG, QD
     Route: 048

REACTIONS (22)
  - Deafness [Recovered/Resolved]
  - Hypoacusis [Recovered/Resolved]
  - Haematoma [Recovered/Resolved]
  - Rhinitis [Recovered/Resolved]
  - Muscular weakness [Recovered/Resolved]
  - Muscle spasms [Recovered/Resolved]
  - Alopecia [Recovered/Resolved]
  - Psoriasis [Recovered/Resolved]
  - Eye inflammation [Recovered/Resolved]
  - Tinnitus [Recovered/Resolved]
  - Eye irritation [Recovered/Resolved]
  - Visual impairment [Recovered/Resolved]
  - Vision blurred [Recovered/Resolved]
  - Dry eye [Recovered/Resolved]
  - Headache [Recovered/Resolved]
  - Fatigue [Recovered/Resolved]
  - Somnolence [Recovered/Resolved]
  - Sleep disorder [Recovered/Resolved]
  - Paraesthesia [Recovered/Resolved]
  - Erectile dysfunction [Recovered/Resolved]
  - Libido decreased [Recovered/Resolved]
  - Dizziness [Recovered/Resolved]
